FAERS Safety Report 4551939-8 (Version None)
Quarter: 2005Q1

REPORT INFORMATION
  Report Type: 
  Country: None (occurrence: None)
  Receive Date: 20050113
  Receipt Date: 20041115
  Transmission Date: 20050727
  Serious: Yes (Hospitalization, Other)
  Sender: FDA-Public Use
  Company Number: 2004S1003409

PATIENT
  Age: 81 Year
  Sex: Female
  Weight: 77.1115 kg

DRUGS (6)
  1. CLONIDINE HCL [Suspect]
     Indication: HYPERTENSION
     Dosage: 0.1 MG TID, PRN, ORAL
     Route: 048
     Dates: start: 20040801
  2. PROPOXYPHENE HCL [Concomitant]
  3. METOPROLOL [Concomitant]
  4. DILTIAZEM [Concomitant]
  5. SULFASALAZINE [Concomitant]
  6. MULTI-VITAMIN [Concomitant]

REACTIONS (7)
  - ANGIOPATHY [None]
  - ANXIETY [None]
  - BLOOD PRESSURE INCREASED [None]
  - CEREBROVASCULAR ACCIDENT [None]
  - DRY MOUTH [None]
  - ORAL INFECTION [None]
  - POLLAKIURIA [None]
